FAERS Safety Report 9136608 (Version 1)
Quarter: 2013Q1

REPORT INFORMATION
  Report Type: Spontaneous
  Country: US (occurrence: US)
  Receive Date: 20130304
  Receipt Date: 20130304
  Transmission Date: 20140127
  Serious: No
  Sender: FDA-Public Use
  Company Number: US-ABBOTT-12P-163-0941236-00

PATIENT
  Sex: Female

DRUGS (1)
  1. ANDROGEL 1% [Suspect]
     Indication: ACCIDENTAL EXPOSURE TO PRODUCT

REACTIONS (11)
  - Accidental exposure to product [Not Recovered/Not Resolved]
  - Mood altered [Not Recovered/Not Resolved]
  - Depression [Not Recovered/Not Resolved]
  - Abnormal behaviour [Not Recovered/Not Resolved]
  - Screaming [Not Recovered/Not Resolved]
  - Anger [Not Recovered/Not Resolved]
  - Hair growth abnormal [Not Recovered/Not Resolved]
  - Hair growth abnormal [Not Recovered/Not Resolved]
  - Hair growth abnormal [Not Recovered/Not Resolved]
  - Early menarche [Not Recovered/Not Resolved]
  - Breast disorder female [Not Recovered/Not Resolved]
